FAERS Safety Report 7736843-6 (Version None)
Quarter: 2011Q3

REPORT INFORMATION
  Report Type: 
  Country: None (occurrence: None)
  Receive Date: 20110908
  Receipt Date: 20110908
  Transmission Date: 20111222
  Serious: Yes (Other)
  Sender: FDA-Public Use
  Company Number: None

PATIENT
  Age: 33 Year
  Sex: Female
  Weight: 122.46 kg

DRUGS (1)
  1. MIRENA [Suspect]
     Indication: CONTRACEPTION
     Dates: start: 20090709, end: 20110907

REACTIONS (9)
  - WEIGHT INCREASED [None]
  - DEPRESSION [None]
  - HEADACHE [None]
  - VISION BLURRED [None]
  - MUSCLE SPASMS [None]
  - MEMORY IMPAIRMENT [None]
  - ABDOMINAL PAIN UPPER [None]
  - SOCIAL AVOIDANT BEHAVIOUR [None]
  - NAUSEA [None]
